FAERS Safety Report 6182404-2 (Version None)
Quarter: 2009Q2

REPORT INFORMATION
  Report Type: 
  Country: None (occurrence: None)
  Receive Date: 20090507
  Receipt Date: 20090429
  Transmission Date: 20091009
  Serious: Yes (Hospitalization, Other)
  Sender: FDA-Public Use
  Company Number: US-ELI_LILLY_AND_COMPANY-US200904007202

PATIENT
  Sex: Female
  Weight: 163.27 kg

DRUGS (18)
  1. BYETTA [Suspect]
     Indication: TYPE 2 DIABETES MELLITUS
     Dosage: 10 UG, 2/D
     Route: 058
     Dates: start: 20070101, end: 20080101
  2. NOVOLOG [Concomitant]
     Indication: TYPE 2 DIABETES MELLITUS
     Dosage: UNK, AS NEEDED
     Route: 058
  3. LANTUS [Concomitant]
     Indication: TYPE 2 DIABETES MELLITUS
     Dosage: UNK, 3/D
     Route: 058
  4. LANTUS [Concomitant]
     Dosage: 60 U, EACH EVENING
     Route: 058
  5. VYTORIN [Concomitant]
     Dosage: UNK, UNKNOWN
  6. ATENOLOL [Concomitant]
     Indication: CARDIAC DISORDER
     Dosage: 50 MG, DAILY (1/D)
  7. FLONASE [Concomitant]
     Dosage: 50 UG, AS NEEDED
  8. ADALAT [Concomitant]
     Indication: CARDIAC DISORDER
     Dosage: 60 MG, DAILY (1/D)
     Route: 048
  9. PLAVIX [Concomitant]
     Indication: CARDIAC DISORDER
     Dosage: 75 MG, DAILY (1/D)
     Route: 048
  10. PHENERGAN [Concomitant]
     Indication: ABDOMINAL DISCOMFORT
     Dosage: 25 MG, AS NEEDED
  11. SYMLIN [Concomitant]
     Indication: TYPE 2 DIABETES MELLITUS
     Dosage: 15 UG, 2/D
     Route: 058
     Dates: start: 20080101, end: 20080101
  12. SYMLIN [Concomitant]
     Dosage: 30 UG, 2/D
     Route: 058
     Dates: start: 20080101, end: 20080101
  13. SYMLIN [Concomitant]
     Dosage: 45 UG, UNKNOWN
     Route: 058
     Dates: start: 20080101, end: 20080101
  14. SYMLIN [Concomitant]
     Dosage: 60 UG, 2/D
     Route: 058
     Dates: start: 20080101, end: 20080101
  15. SYMLIN [Concomitant]
     Dosage: 120 UG, 2/D
     Route: 058
     Dates: start: 20080101, end: 20080101
  16. SYMLIN [Concomitant]
     Dosage: 60 UG, OTHER
     Route: 058
     Dates: start: 20080101
  17. NEXIUM [Concomitant]
     Indication: GASTROOESOPHAGEAL REFLUX DISEASE
     Dosage: 40 MG, DAILY (1/D)
     Route: 048
  18. VICODIN [Concomitant]
     Indication: PAIN
     Dosage: 750 MG, AS NEEDED
     Route: 048

REACTIONS (45)
  - ABDOMINAL PAIN [None]
  - ANOREXIA [None]
  - ARTHRITIS [None]
  - ASTHENIA [None]
  - BACK DISORDER [None]
  - BLOOD GLUCOSE DECREASED [None]
  - BLOOD GLUCOSE INCREASED [None]
  - BLOOD POTASSIUM DECREASED [None]
  - CARDIAC FAILURE CONGESTIVE [None]
  - CEREBROVASCULAR ACCIDENT [None]
  - CHEST PAIN [None]
  - CONSTIPATION [None]
  - CORONARY ARTERY OCCLUSION [None]
  - DECREASED APPETITE [None]
  - DIARRHOEA [None]
  - DIZZINESS [None]
  - DYSPNOEA [None]
  - EXOSTOSIS [None]
  - FALL [None]
  - FATIGUE [None]
  - FIBROMYALGIA [None]
  - FINGER DEFORMITY [None]
  - FOLATE DEFICIENCY [None]
  - FOOT DEFORMITY [None]
  - GAIT DISTURBANCE [None]
  - GALLBLADDER DISORDER [None]
  - GASTROOESOPHAGEAL REFLUX DISEASE [None]
  - HEPATIC CIRRHOSIS [None]
  - INSOMNIA [None]
  - IRRITABLE BOWEL SYNDROME [None]
  - MUSCLE DISORDER [None]
  - NAUSEA [None]
  - NEUROPATHY PERIPHERAL [None]
  - PAIN IN EXTREMITY [None]
  - PERIPHERAL VASCULAR DISORDER [None]
  - POLYARTHRITIS [None]
  - SENSORY LOSS [None]
  - SPINAL COLUMN STENOSIS [None]
  - STRESS [None]
  - TRANSIENT ISCHAEMIC ATTACK [None]
  - VISUAL IMPAIRMENT [None]
  - VITAMIN B12 DECREASED [None]
  - VITAMIN B12 DEFICIENCY [None]
  - VOMITING [None]
  - WEIGHT DECREASED [None]
